FAERS Safety Report 5605464-3 (Version None)
Quarter: 2008Q1

REPORT INFORMATION
  Report Type: 
  Country: None (occurrence: None)
  Receive Date: 20080124
  Receipt Date: 20080108
  Transmission Date: 20080703
  Serious: Yes (Other)
  Sender: FDA-Public Use
  Company Number: VER_00096_2008

PATIENT
  Sex: Male
  Weight: 19.5047 kg

DRUGS (2)
  1. EPINEPHRINE [Suspect]
     Indication: ANAPHYLACTIC REACTION
     Dosage: 0.15 MG INTRAMUSCULAR/SUBCUTANEOUS
     Route: 030
     Dates: start: 20071222
  2. OTHER ANTI-ASTHMATICS, INHALANTS [Concomitant]

REACTIONS (2)
  - HYPERTENSION [None]
  - WRONG TECHNIQUE IN DRUG USAGE PROCESS [None]
